FAERS Safety Report 7177070-3 (Version None)
Quarter: 2010Q4

REPORT INFORMATION
  Report Type: 
  Country: None (occurrence: None)
  Receive Date: 20101207
  Receipt Date: 20101125
  Transmission Date: 20110411
  Serious: Yes (Hospitalization)
  Sender: FDA-Public Use
  Company Number: 008887

PATIENT
  Sex: Female
  Weight: 65 kg

DRUGS (5)
  1. CIMZIA [Suspect]
     Indication: RHEUMATOID ARTHRITIS
     Dosage: (400 MG 1X/2 WEEKS SUBCUTANEOUS), (200 MG 1X/2 WEEKS SUBCUTANEOUS)
     Route: 058
     Dates: start: 20060704, end: 20071231
  2. CIMZIA [Suspect]
     Indication: RHEUMATOID ARTHRITIS
     Dosage: (400 MG 1X/2 WEEKS SUBCUTANEOUS), (200 MG 1X/2 WEEKS SUBCUTANEOUS)
     Route: 058
     Dates: start: 20080115
  3. METHOTREXATE [Concomitant]
  4. DICLOFENAC SODIUM [Concomitant]
  5. PREDNISONE [Concomitant]

REACTIONS (13)
  - ANGINA PECTORIS [None]
  - ARTHRALGIA [None]
  - BLOOD CHOLESTEROL INCREASED [None]
  - BLOOD TRIGLYCERIDES INCREASED [None]
  - CHEST PAIN [None]
  - DYSLIPIDAEMIA [None]
  - FATIGUE [None]
  - LOW DENSITY LIPOPROTEIN INCREASED [None]
  - MITRAL VALVE INCOMPETENCE [None]
  - RED BLOOD CELL COUNT DECREASED [None]
  - SUPRAVENTRICULAR EXTRASYSTOLES [None]
  - TRICUSPID VALVE INCOMPETENCE [None]
  - VERTIGO [None]
